FAERS Safety Report 6221593-8 (Version None)
Quarter: 2009Q2

REPORT INFORMATION
  Report Type: 
  Country: None (occurrence: None)
  Receive Date: 20090608
  Receipt Date: 20090529
  Transmission Date: 20091009
  Serious: Yes (Other)
  Sender: FDA-Public Use
  Company Number: 287828

PATIENT
  Sex: Female

DRUGS (2)
  1. METHOTREXATE [Suspect]
     Dosage: SUBCUTANEOUS
     Route: 058
     Dates: start: 19940101
  2. () [Suspect]
     Dates: start: 20080101

REACTIONS (2)
  - ANAPHYLACTIC REACTION [None]
  - DISEASE PROGRESSION [None]
